FAERS Safety Report 22047569 (Version 1)
Quarter: 2023Q1

REPORT INFORMATION
  Report Type: Spontaneous
  Country: US (occurrence: US)
  Receive Date: 20230301
  Receipt Date: 20230301
  Transmission Date: 20230417
  Serious: No
  Sender: FDA-Public Use
  Company Number: US-AMGEN-USASP2023034907

PATIENT
  Sex: Male

DRUGS (2)
  1. OTEZLA [Suspect]
     Active Substance: APREMILAST
     Indication: Product used for unknown indication
     Dosage: 30 MILLIGRAM, BID
     Route: 048
  2. TALTZ [Concomitant]
     Active Substance: IXEKIZUMAB
     Dosage: 80 MG/M L PEN (1= 1)

REACTIONS (2)
  - Diarrhoea [Unknown]
  - Condition aggravated [Unknown]
